FAERS Safety Report 15009049 (Version 1)
Quarter: 2018Q2

REPORT INFORMATION
  Report Type: Spontaneous
  Country: FR (occurrence: FR)
  Receive Date: 20180614
  Receipt Date: 20180614
  Transmission Date: 20180711
  Serious: Yes (Other)
  Sender: FDA-Public Use
  Company Number: FR-MERCK KGAA-2049375

PATIENT
  Age: 65 Year
  Sex: Female

DRUGS (1)
  1. NOVOTHYROX [Suspect]
     Active Substance: LEVOTHYROXINE SODIUM
     Indication: PRODUCT USED FOR UNKNOWN INDICATION

REACTIONS (8)
  - Angina pectoris [None]
  - Pain in extremity [None]
  - Gait disturbance [None]
  - Abdominal distension [None]
  - Eye swelling [None]
  - Neuralgia [None]
  - Insomnia [None]
  - Alopecia [None]
